FAERS Safety Report 6321533-7 (Version None)
Quarter: 2009Q3

REPORT INFORMATION
  Report Type: 
  Country: None (occurrence: None)
  Receive Date: 20090824
  Receipt Date: 20090814
  Transmission Date: 20100115
  Serious: Yes (Death)
  Sender: FDA-Public Use
  Company Number: US-RANBAXY-2009RR-26009

PATIENT
  Age: 70 Year
  Sex: Male

DRUGS (7)
  1. ATORVASTATIN [Suspect]
     Indication: HYPERLIPIDAEMIA
  2. EZETIMIBE [Suspect]
     Indication: HYPERLIPIDAEMIA
  3. CERIVASTATIN [Suspect]
     Indication: HYPERLIPIDAEMIA
  4. FLUVASTATIN [Suspect]
     Indication: HYPERLIPIDAEMIA
  5. PRAVASTATIN [Suspect]
     Indication: HYPERLIPIDAEMIA
  6. ROSUVASTATIN [Suspect]
     Indication: HYPERLIPIDAEMIA
  7. SIMVASTATIN [Suspect]
     Indication: HYPERLIPIDAEMIA

REACTIONS (1)
  - AMYOTROPHIC LATERAL SCLEROSIS [None]
